FAERS Safety Report 4449089-4 (Version None)
Quarter: 2004Q3

REPORT INFORMATION
  Report Type: 
  Country: None (occurrence: None)
  Receive Date: 20040910
  Receipt Date: 20040903
  Transmission Date: 20050211
  Serious: Yes (Hospitalization)
  Sender: FDA-Public Use
  Company Number: 2004SE04954

PATIENT
  Age: 93 Year
  Sex: Female
  Weight: 45 kg

DRUGS (7)
  1. KENZEN [Suspect]
     Indication: HYPERTENSION
     Dosage: 16 MG QD PO
     Route: 048
     Dates: end: 20040710
  2. LASILIX FAIBLE [Suspect]
     Dosage: 20 MG QD PO
     Route: 048
  3. DIGOXIN [Suspect]
     Indication: ATRIAL FIBRILLATION
     Dosage: 0.5 DF DAILY PO
     Route: 048
     Dates: end: 20040710
  4. DIGOXIN [Suspect]
     Indication: ATRIAL FLUTTER
     Dosage: 0.5 DF DAILY PO
     Route: 048
     Dates: end: 20040710
  5. LEXOMIL [Concomitant]
  6. PREVISCAN [Concomitant]
  7. ZYLORIC [Concomitant]

REACTIONS (14)
  - ANOREXIA [None]
  - ASTHENIA [None]
  - ATRIAL FIBRILLATION [None]
  - BLOOD POTASSIUM INCREASED [None]
  - BRADYCARDIA [None]
  - CIRCADIAN RHYTHM SLEEP DISORDER [None]
  - CONDITION AGGRAVATED [None]
  - DISORIENTATION [None]
  - HEART RATE IRREGULAR [None]
  - HEART SOUNDS ABNORMAL [None]
  - HYPONATRAEMIA [None]
  - INTERNATIONAL NORMALISED RATIO INCREASED [None]
  - OVERDOSE [None]
  - RENAL FAILURE [None]
